FAERS Safety Report 8076798-0 (Version None)
Quarter: 2012Q1

REPORT INFORMATION
  Report Type: 
  Country: None (occurrence: None)
  Receive Date: 20120127
  Receipt Date: 20120120
  Transmission Date: 20120608
  Serious: Yes (Other)
  Sender: FDA-Public Use
  Company Number: FR-GILEAD-2012-0049598

PATIENT
  Sex: Male

DRUGS (7)
  1. VIREAD [Suspect]
     Indication: HIV INFECTION
     Dosage: 0.5 DF, UNK
     Route: 048
     Dates: start: 20090326
  2. REYATAZ [Suspect]
     Dosage: 1 DF, QD
     Route: 048
     Dates: start: 20091221, end: 20110503
  3. NORVIR [Suspect]
     Indication: HIV INFECTION
     Dosage: 1 DF, UNK
     Route: 048
     Dates: start: 20090326, end: 20110503
  4. CRESTOR [Concomitant]
     Indication: DYSLIPIDAEMIA
     Dosage: 5 MG, UNK
     Route: 048
  5. EMTRIVA [Suspect]
     Indication: HIV INFECTION
     Dosage: 1 DF, QD
     Route: 048
     Dates: start: 20090326
  6. ZOLEDRONOC ACID [Concomitant]
     Indication: OSTEOPOROSIS
     Dosage: 5 MG, UNK
     Route: 042
  7. REYATAZ [Suspect]
     Indication: HIV INFECTION
     Dosage: 1 DF, QD
     Route: 048
     Dates: start: 20091221, end: 20110503

REACTIONS (2)
  - RENAL TUBULAR DISORDER [None]
  - CONDITION AGGRAVATED [None]
